FAERS Safety Report 24043639 (Version 1)
Quarter: 2024Q3

REPORT INFORMATION
  Report Type: Spontaneous
  Country: US (occurrence: None)
  Receive Date: 20240703
  Receipt Date: 20240703
  Transmission Date: 20241017
  Serious: No
  Sender: ENCUBE ETHICALS
  Company Number: US-Encube-000796

PATIENT
  Age: 53 Year
  Sex: Female

DRUGS (1)
  1. AZELAIC ACID [Suspect]
     Active Substance: AZELAIC ACID
     Indication: Rosacea
     Dates: start: 20240308

REACTIONS (3)
  - Application site erythema [Recovered/Resolved]
  - Poor quality product administered [Unknown]
  - Product container seal issue [Unknown]

NARRATIVE: CASE EVENT DATE: 20240101
